FAERS Safety Report 4989924-4 (Version None)
Quarter: 2006Q2

REPORT INFORMATION
  Report Type: 
  Country: None (occurrence: None)
  Receive Date: 20060428
  Receipt Date: 20060414
  Transmission Date: 20061013
  Serious: Yes (Death, Hospitalization)
  Sender: FDA-Public Use
  Company Number: 2005P1000410

PATIENT
  Age: 76 Year
  Sex: Male
  Weight: 86 kg

DRUGS (8)
  1. RETEPLASE (RETEPLASE) [Suspect]
     Indication: ACUTE MYOCARDIAL INFARCTION
     Dosage: IV
     Route: 042
     Dates: start: 20050705
  2. REOPRO [Suspect]
     Indication: ACUTE MYOCARDIAL INFARCTION
     Dosage: IV
     Route: 042
     Dates: start: 20050705
  3. ASPIRIN [Concomitant]
  4. CLOPIDOGREL [Concomitant]
  5. ATORVASTATIN CALCIUM [Concomitant]
  6. OMEPRAZOLE [Concomitant]
  7. PERINDOPRIL [Concomitant]
  8. FUROSEMIDE [Concomitant]

REACTIONS (14)
  - ACUTE MYOCARDIAL INFARCTION [None]
  - ACUTE RESPIRATORY DISTRESS SYNDROME [None]
  - ARTERIOSCLEROSIS CORONARY ARTERY [None]
  - ASPARTATE AMINOTRANSFERASE INCREASED [None]
  - BRONCHOPNEUMONIA [None]
  - CARDIOGENIC SHOCK [None]
  - CORONARY ARTERY THROMBOSIS [None]
  - HAEMATURIA [None]
  - HAEMOGLOBIN DECREASED [None]
  - HYPOXIA [None]
  - RENAL FAILURE [None]
  - THERAPY NON-RESPONDER [None]
  - THROMBOCYTOPENIA [None]
  - THROMBOSIS IN DEVICE [None]
